FAERS Safety Report 17007849 (Version 2)
Quarter: 2020Q4

REPORT INFORMATION
  Report Type: Spontaneous
  Country: CA (occurrence: CA)
  Receive Date: 20191108
  Receipt Date: 20201215
  Transmission Date: 20210113
  Serious: Yes (Other)
  Sender: FDA-Public Use
  Company Number: CA-SA-2019SA303196

PATIENT

DRUGS (4)
  1. INFLUENZA VACCINE [Suspect]
     Active Substance: INFLUENZA VIRUS VACCINE
     Indication: IMMUNISATION
     Route: 030
  2. DAPSONE. [Concomitant]
     Active Substance: DAPSONE
  3. RIFAMPIN. [Concomitant]
     Active Substance: RIFAMPIN
  4. OFLOXACIN. [Concomitant]
     Active Substance: OFLOXACIN

REACTIONS (10)
  - Skin lesion [Recovering/Resolving]
  - Skin mass [Recovering/Resolving]
  - Papule [Recovering/Resolving]
  - Rash [Recovering/Resolving]
  - Upper respiratory tract infection [Recovering/Resolving]
  - Swelling [Recovering/Resolving]
  - Rash erythematous [Recovering/Resolving]
  - Skin plaque [Recovering/Resolving]
  - Methaemoglobinaemia [Recovering/Resolving]
  - Type 2 lepra reaction [Recovering/Resolving]
